FAERS Safety Report 16402814 (Version 1)
Quarter: 2019Q2

REPORT INFORMATION
  Report Type: Spontaneous
  Country: NL (occurrence: NL)
  Receive Date: 20190607
  Receipt Date: 20190607
  Transmission Date: 20190711
  Serious: Yes (Disabling, Other)
  Sender: FDA-Public Use
  Company Number: NL-UCBSA-2019023280

PATIENT
  Age: 80 Year
  Sex: Female

DRUGS (2)
  1. VIMPAT [Suspect]
     Active Substance: LACOSAMIDE
     Indication: OFF LABEL USE
  2. VIMPAT [Suspect]
     Active Substance: LACOSAMIDE
     Indication: PAIN
     Dosage: 50 MG DAILY
     Dates: start: 201905, end: 20190528

REACTIONS (5)
  - Off label use [Unknown]
  - Tinnitus [Unknown]
  - Underdose [Unknown]
  - Drug ineffective for unapproved indication [Unknown]
  - Deafness [Unknown]

NARRATIVE: CASE EVENT DATE: 201905
